FAERS Safety Report 4289036-1 (Version None)
Quarter: 2004Q1

REPORT INFORMATION
  Report Type: 
  Country: None (occurrence: None)
  Receive Date: 20040126
  Receipt Date: 20031027
  Transmission Date: 20041129
  Serious: No
  Sender: FDA-Public Use
  Company Number: USA030740556

PATIENT
  Age: 71 Year
  Sex: Female
  Weight: 54 kg

DRUGS (2)
  1. FORTEO [Suspect]
     Indication: OSTEOPOROSIS
     Dosage: 20 UG/DAY
     Dates: start: 20030110
  2. CITRACAL (CALCIUM CITRATE) [Concomitant]

REACTIONS (7)
  - CHALAZION [None]
  - EYE INFECTION [None]
  - EYE SWELLING [None]
  - FATIGUE [None]
  - HORDEOLUM [None]
  - MUSCLE CRAMP [None]
  - PARAESTHESIA [None]
